FAERS Safety Report 9040881 (Version 1)
Quarter: 2013Q1

REPORT INFORMATION
  Report Type: Spontaneous
  Country: US (occurrence: None)
  Receive Date: 20130123
  Receipt Date: 20130123
  Transmission Date: 20140127
  Serious: Yes (Life-Threatening, Hospitalization, Disabling)
  Sender: FDA-Public Use
  Company Number: None

PATIENT
  Age: 93 Year
  Sex: Male
  Weight: 99 kg

DRUGS (1)
  1. ACETAMINOPHEN\HYDROCODONE [Suspect]
     Indication: PAIN
     Route: 048
     Dates: start: 20060720, end: 20121105

REACTIONS (5)
  - Sedation [None]
  - Vomiting [None]
  - Nausea [None]
  - Unresponsive to stimuli [None]
  - Depressed level of consciousness [None]
